FAERS Safety Report 22176051 (Version 1)
Quarter: 2023Q2

REPORT INFORMATION
  Report Type: Spontaneous
  Country: US (occurrence: None)
  Receive Date: 20230403
  Receipt Date: 20230403
  Transmission Date: 20230722
  Serious: Yes (Other)
  Sender: FDA-Public Use
  Company Number: None

PATIENT
  Age: 66 Year
  Sex: Female
  Weight: 49.95 kg

DRUGS (17)
  1. DIMETHYL SULFOXIDE [Suspect]
     Active Substance: DIMETHYL SULFOXIDE
     Indication: Pain
     Dosage: OTHER QUANTITY : 8 OUNCE(S);?
     Route: 061
     Dates: start: 20230402, end: 20230402
  2. DIMETHYL SULFOXIDE [Suspect]
     Active Substance: DIMETHYL SULFOXIDE
     Indication: Skin cosmetic procedure
  3. backlofen [Concomitant]
  4. BHRT [Concomitant]
  5. HERBALS\WITHANIA SOMNIFERA ROOT [Concomitant]
     Active Substance: HERBALS\WITHANIA SOMNIFERA ROOT
  6. HERBALS [Concomitant]
     Active Substance: HERBALS
  7. CYANOCOBALAMIN\DEXPANTHENOL\NIACINAMIDE\PYRIDOXINE HYDROCHLORIDE\RIBOF [Concomitant]
     Active Substance: CYANOCOBALAMIN\DEXPANTHENOL\NIACINAMIDE\PYRIDOXINE HYDROCHLORIDE\RIBOFLAVIN 5^-PHOSPHATE SODIUM\THIA
  8. VITAMIN C [Concomitant]
     Active Substance: ASCORBIC ACID
  9. VITAMIN A [Concomitant]
     Active Substance: VITAMIN A
  10. VITAMIN D [Concomitant]
     Active Substance: VITAMIN D NOS
  11. VITAMIN K [Concomitant]
     Active Substance: PHYTONADIONE
  12. MAGNESIUM TAURATE [Concomitant]
  13. tryptophan [Concomitant]
  14. MELATONIN [Concomitant]
  15. r iipoic acid [Concomitant]
  16. PQQ [Concomitant]
  17. s acetyl gluathione [Concomitant]

REACTIONS (15)
  - Accidental exposure to product [None]
  - Exposure via skin contact [None]
  - Injury [None]
  - Product leakage [None]
  - Skin irritation [None]
  - Skin irritation [None]
  - Swollen tongue [None]
  - Nausea [None]
  - Headache [None]
  - Eye irritation [None]
  - Taste disorder [None]
  - Skin disorder [None]
  - Product label issue [None]
  - Skin burning sensation [None]
  - Tongue discomfort [None]

NARRATIVE: CASE EVENT DATE: 20230402
